FAERS Safety Report 7213582-1 (Version None)
Quarter: 2011Q1

REPORT INFORMATION
  Report Type: 
  Country: None (occurrence: None)
  Receive Date: 20110106
  Receipt Date: 20101128
  Transmission Date: 20110831
  Serious: Yes (Death, Other)
  Sender: FDA-Public Use
  Company Number: US-BAXTER-2009BH016664

PATIENT
  Sex: Female

DRUGS (4)
  1. IRON [Concomitant]
     Indication: PRODUCT USED FOR UNKNOWN INDICATION
     Route: 065
  2. HEPARIN SODIUM INJECTION [Suspect]
     Indication: PRODUCT USED FOR UNKNOWN INDICATION
     Route: 065
     Dates: start: 20070901, end: 20071001
  3. STEROIDS [Concomitant]
     Indication: PRODUCT USED FOR UNKNOWN INDICATION
     Route: 065
  4. ANTIBIOTICS [Concomitant]
     Indication: PRODUCT USED FOR UNKNOWN INDICATION
     Route: 065

REACTIONS (10)
  - CARDIAC DISORDER [None]
  - ORGAN FAILURE [None]
  - CHEST PAIN [None]
  - DEATH [None]
  - SHOCK [None]
  - VOMITING [None]
  - BLOOD PRESSURE DECREASED [None]
  - ASTHENIA [None]
  - NAUSEA [None]
  - SYNCOPE [None]
